FAERS Safety Report 5664904-4 (Version None)
Quarter: 2008Q1

REPORT INFORMATION
  Report Type: 
  Country: None (occurrence: None)
  Receive Date: 20080314
  Receipt Date: 20080303
  Transmission Date: 20080703
  Serious: Yes (Other)
  Sender: FDA-Public Use
  Company Number: US-PFIZER INC-2008019788

PATIENT
  Sex: Female
  Weight: 140 kg

DRUGS (4)
  1. GEODON [Suspect]
     Indication: HALLUCINATION
  2. GEODON [Suspect]
     Indication: HYPOMANIA
  3. VALTREX [Concomitant]
  4. ORAL CONTRACEPTIVE NOS [Concomitant]

REACTIONS (15)
  - BLOOD PRESSURE INCREASED [None]
  - DECREASED APPETITE [None]
  - HALLUCINATION [None]
  - HEADACHE [None]
  - HEART RATE INCREASED [None]
  - HYPOAESTHESIA [None]
  - HYPOMANIA [None]
  - MEMORY IMPAIRMENT [None]
  - MUSCLE TWITCHING [None]
  - MUSCULOSKELETAL STIFFNESS [None]
  - PHARYNGOLARYNGEAL PAIN [None]
  - PYREXIA [None]
  - SOMNOLENCE [None]
  - VISUAL DISTURBANCE [None]
  - WEIGHT DECREASED [None]
